FAERS Safety Report 9443042 (Version 2)
Quarter: 2013Q3

REPORT INFORMATION
  Report Type: Report from Study
  Country: DE (occurrence: DE)
  Receive Date: 20130806
  Receipt Date: 20130812
  Transmission Date: 20140515
  Serious: Yes (Other)
  Sender: FDA-Public Use
  Company Number: DE-B.I. PHARMACEUTICALS,INC./RIDGEFIELD-2013-DE-02039DE

PATIENT
  Age: 43 Year
  Sex: Female
  Weight: 76 kg

DRUGS (3)
  1. SIFROL [Suspect]
     Indication: RESTLESS LEGS SYNDROME
     Dosage: 5 ANZ
     Route: 048
     Dates: start: 20130729
  2. ZOPICLON 7.5 [Suspect]
     Indication: RESTLESS LEGS SYNDROME
     Dosage: 5 ANZ
     Route: 048
     Dates: start: 20130729
  3. TAVOR [Suspect]
     Indication: RESTLESS LEGS SYNDROME
     Dosage: 4 ANZ
     Route: 048
     Dates: start: 20130729

REACTIONS (2)
  - Drug abuse [Unknown]
  - Somnolence [Unknown]
